FAERS Safety Report 18028988 (Version 1)
Quarter: 2020Q3

REPORT INFORMATION
  Report Type: Spontaneous
  Country: US (occurrence: US)
  Receive Date: 20200715
  Receipt Date: 20200715
  Transmission Date: 20201103
  Serious: Yes (Other)
  Sender: FDA-Public Use
  Company Number: US-ASTRAZENECA-2020SE86541

PATIENT
  Age: 80 Year
  Sex: Female

DRUGS (5)
  1. CALQUENCE [Suspect]
     Active Substance: ACALABRUTINIB
     Route: 048
  2. CALQUENCE [Suspect]
     Active Substance: ACALABRUTINIB
     Route: 048
  3. LYSINE [Suspect]
     Active Substance: LYSINE
  4. IGG POWDER [Suspect]
     Active Substance: HUMAN IMMUNOGLOBULIN G
  5. GAZYVA [Suspect]
     Active Substance: OBINUTUZUMAB

REACTIONS (10)
  - Swelling [Not Recovered/Not Resolved]
  - Renal pain [Unknown]
  - Fungal infection [Not Recovered/Not Resolved]
  - Herpes zoster [Not Recovered/Not Resolved]
  - Rash [Unknown]
  - SARS-CoV-2 antibody test negative [Unknown]
  - Malaise [Unknown]
  - Headache [Unknown]
  - Drug hypersensitivity [Unknown]
  - Cardiac disorder [Unknown]

NARRATIVE: CASE EVENT DATE: 202002
